FAERS Safety Report 4774081-X (Version None)
Quarter: 2005Q3

REPORT INFORMATION
  Report Type: 
  Country: None (occurrence: None)
  Receive Date: 20050920
  Receipt Date: 20050914
  Transmission Date: 20060218
  Serious: Yes (Disabling)
  Sender: FDA-Public Use
  Company Number: US-MERCK-0509USA02213

PATIENT
  Age: 49 Year
  Sex: Male

DRUGS (1)
  1. VIOXX [Suspect]
     Indication: GOUT
     Route: 048
     Dates: start: 20020402, end: 20030101

REACTIONS (1)
  - CORONARY ARTERY DISEASE [None]
